FAERS Safety Report 9335830 (Version 2)
Quarter: 2013Q4

REPORT INFORMATION
  Report Type: Spontaneous
  Country: US (occurrence: US)
  Receive Date: 20130606
  Receipt Date: 20131008
  Transmission Date: 20140711
  Serious: No
  Sender: FDA-Public Use
  Company Number: US-AMGEN-USASP2013036442

PATIENT
  Age: 81 Year
  Sex: Female
  Weight: 54.42 kg

DRUGS (6)
  1. PROLIA [Suspect]
     Indication: OSTEOPOROSIS POSTMENOPAUSAL
     Dosage: 60 MG, UNK
     Route: 058
     Dates: start: 20130415
  2. DIOVAN [Concomitant]
     Dosage: UNK
     Route: 048
  3. NEXIUM                             /01479302/ [Concomitant]
     Route: 048
  4. DICYCLOMINE                        /00068601/ [Concomitant]
     Route: 048
  5. CALCIUM [Concomitant]
     Dosage: 1200 MG, UNK
     Route: 048
  6. VITAMIN D                          /00107901/ [Concomitant]
     Dosage: 1000 UNK, UNK
     Route: 048

REACTIONS (3)
  - Burning sensation [Recovering/Resolving]
  - Rash macular [Recovering/Resolving]
  - Erythema [Recovering/Resolving]
